FAERS Safety Report 5327852-5 (Version None)
Quarter: 2007Q2

REPORT INFORMATION
  Report Type: 
  Country: None (occurrence: None)
  Receive Date: 20070517
  Receipt Date: 20070510
  Transmission Date: 20071010
  Serious: Yes (Other)
  Sender: FDA-Public Use
  Company Number: GB-ALLERGAN-0705048US

PATIENT
  Sex: Female

DRUGS (2)
  1. TIMOLOL MALEATE SOL UNSPECIFID [Suspect]
     Indication: INTRAOCULAR PRESSURE INCREASED
     Route: 047
  2. DORZOLAMIDE [Suspect]
     Indication: INTRAOCULAR PRESSURE INCREASED
     Route: 047

REACTIONS (2)
  - CHOROIDAL DETACHMENT [None]
  - HYPOTONY OF EYE [None]
